FAERS Safety Report 26196531 (Version 1)
Quarter: 2025Q4

REPORT INFORMATION
  Report Type: Spontaneous
  Country: EU (occurrence: EU)
  Receive Date: 20251224
  Receipt Date: 20251224
  Transmission Date: 20260117
  Serious: Yes (Life-Threatening, Hospitalization, Other)
  Sender: ASCEND THERAPEUTICS US, LLC
  Company Number: EU-Ascend Therapeutics US, LLC-2190558

PATIENT
  Age: 19 Year
  Sex: Male

DRUGS (2)
  1. ANDROGEL [Suspect]
     Active Substance: TESTOSTERONE
     Indication: Physical fitness training
  2. TESTOSTERONE [Suspect]
     Active Substance: TESTOSTERONE

REACTIONS (6)
  - Pneumomediastinum [Recovered/Resolved]
  - Secondary hypogonadism [Unknown]
  - Polycythaemia [Unknown]
  - Focal segmental glomerulosclerosis [Recovering/Resolving]
  - Deep vein thrombosis [Recovering/Resolving]
  - Pulmonary embolism [Recovering/Resolving]
